FAERS Safety Report 6233206-X (Version None)
Quarter: 2009Q2

REPORT INFORMATION
  Report Type: 
  Country: None (occurrence: None)
  Receive Date: 20090617
  Receipt Date: 20090605
  Transmission Date: 20091009
  Serious: Yes (Other)
  Sender: FDA-Public Use
  Company Number: PHHY2009MX22606

PATIENT
  Age: 77 Year
  Sex: Female

DRUGS (2)
  1. DIOVAN HCT [Suspect]
     Indication: HYPERTENSION
     Dosage: 1 TABLET (160/25 MG) PER DAY
     Route: 048
  2. METOPROLOL SUCCINATE [Concomitant]
     Indication: PAIN
     Dosage: 1 TABLET PER DAY
     Route: 048

REACTIONS (2)
  - KIDNEY INFECTION [None]
  - RENAL PAIN [None]
